FAERS Safety Report 8139978-1 (Version None)
Quarter: 2012Q1

REPORT INFORMATION
  Report Type: 
  Country: None (occurrence: None)
  Receive Date: 20120215
  Receipt Date: 20120208
  Transmission Date: 20120608
  Serious: Yes (Hospitalization)
  Sender: FDA-Public Use
  Company Number: JP-MERCK-1111USA01677

PATIENT
  Age: 77 Year
  Sex: Male

DRUGS (11)
  1. ASPIRIN [Concomitant]
     Indication: ANGINA PECTORIS
     Route: 048
     Dates: start: 20020221
  2. DILTIAZEM HCL [Concomitant]
     Indication: ANGINA PECTORIS
     Route: 048
     Dates: start: 19990312
  3. TICLOPIDINE HCL [Concomitant]
     Indication: ANGINA PECTORIS
     Route: 048
     Dates: start: 20060626
  4. BASEN [Concomitant]
     Route: 048
     Dates: start: 20040624, end: 20111027
  5. CRESTOR [Suspect]
     Indication: HYPERCHOLESTEROLAEMIA
     Route: 048
     Dates: start: 20110929, end: 20111107
  6. JANUVIA [Suspect]
     Indication: DIABETES MELLITUS
     Route: 048
     Dates: start: 20111027, end: 20111115
  7. ZETIA [Suspect]
     Indication: HYPERCHOLESTEROLAEMIA
     Route: 048
     Dates: start: 20111027, end: 20111107
  8. DIOVAN [Concomitant]
     Indication: HYPERTENSION
     Route: 048
  9. FAMOTIDINE [Concomitant]
     Indication: GASTRIC ULCER
     Route: 048
  10. DILTIAZEM HCL [Concomitant]
     Indication: HYPERTENSION
     Route: 048
     Dates: start: 19990312
  11. TICLOPIDINE HCL [Concomitant]
     Indication: THROMBOSIS PROPHYLAXIS
     Route: 048
     Dates: start: 20060626

REACTIONS (1)
  - RHABDOMYOLYSIS [None]
